FAERS Safety Report 25174904 (Version 1)
Quarter: 2025Q2

REPORT INFORMATION
  Report Type: Spontaneous
  Country: IT (occurrence: IT)
  Receive Date: 20250408
  Receipt Date: 20250408
  Transmission Date: 20250716
  Serious: Yes (Hospitalization)
  Sender: EISAI
  Company Number: IT-Eisai-EC-2025-187159

PATIENT
  Age: 65 Year
  Sex: Female
  Weight: 50 kg

DRUGS (5)
  1. LENVATINIB [Suspect]
     Active Substance: LENVATINIB
     Indication: Renal cancer
     Dates: start: 20240808, end: 20250221
  2. KEYTRUDA [Suspect]
     Active Substance: PEMBROLIZUMAB
     Indication: Renal cancer
     Dates: start: 20240808, end: 20250221
  3. MIRTAZAPINE [Concomitant]
     Active Substance: MIRTAZAPINE
     Indication: Depression
  4. LEVOTHYROXINE SODIUM [Concomitant]
     Active Substance: LEVOTHYROXINE SODIUM
     Indication: Hypothyroidism
  5. GABAPENTIN [Concomitant]
     Active Substance: GABAPENTIN
     Indication: Depression

REACTIONS (1)
  - Duodenitis [Recovering/Resolving]

NARRATIVE: CASE EVENT DATE: 20250221
